FAERS Safety Report 9098936 (Version 1)
Quarter: 2013Q1

REPORT INFORMATION
  Report Type: Spontaneous
  Country: US (occurrence: US)
  Receive Date: 20130213
  Receipt Date: 20130213
  Transmission Date: 20140127
  Serious: No
  Sender: FDA-Public Use
  Company Number: US-BAYER-2013-018294

PATIENT
  Age: 83 Year
  Sex: Female
  Weight: 63.49 kg

DRUGS (7)
  1. ALEVE CAPLET/TABLET,MIDOL EXTENDED RELIEF CAPLET [Suspect]
     Dosage: 2 DF, UNK
     Route: 048
     Dates: start: 20130125
  2. BAYER ASPIRIN REGIMEN ADULT LOW STRENGTH [Concomitant]
  3. METFORMIN [Concomitant]
  4. QUINAPRIL [Concomitant]
  5. AMLODIPINE [Concomitant]
  6. METOPROLOL [Concomitant]
  7. DIAZEPAM [Concomitant]

REACTIONS (3)
  - Dizziness [Recovered/Resolved]
  - Fall [Recovered/Resolved]
  - Dizziness [Recovered/Resolved]
